FAERS Safety Report 8539562-1 (Version None)
Quarter: 2012Q3

REPORT INFORMATION
  Report Type: 
  Country: None (occurrence: None)
  Receive Date: 20120726
  Receipt Date: 20120713
  Transmission Date: 20120928
  Serious: Yes (Other)
  Sender: FDA-Public Use
  Company Number: US-ELI_LILLY_AND_COMPANY-US201207004513

PATIENT
  Sex: Female

DRUGS (4)
  1. CYMBALTA [Suspect]
     Dosage: 60 MG, UNK
     Dates: start: 20120501
  2. PRAVASTATIN [Concomitant]
     Indication: BLOOD CHOLESTEROL
  3. PROPRANOLOL [Concomitant]
     Indication: CARDIAC DISORDER
  4. XANAX [Concomitant]

REACTIONS (10)
  - SLOW SPEECH [None]
  - DRUG DOSE OMISSION [None]
  - ANGER [None]
  - HALLUCINATION [None]
  - FATIGUE [None]
  - BLISTER [None]
  - SOMNOLENCE [None]
  - DYSARTHRIA [None]
  - PYREXIA [None]
  - AGGRESSION [None]
